FAERS Safety Report 10554446 (Version 9)
Quarter: 2015Q4

REPORT INFORMATION
  Report Type: Spontaneous
  Country: US (occurrence: US)
  Receive Date: 20141030
  Receipt Date: 20151016
  Transmission Date: 20160304
  Serious: Yes (Other)
  Sender: FDA-Public Use
  Company Number: US-PFIZER INC-2014298068

PATIENT
  Age: 60 Year
  Sex: Male
  Weight: 127 kg

DRUGS (8)
  1. SUTENT [Suspect]
     Active Substance: SUNITINIB MALATE
     Indication: RENAL CELL CARCINOMA
     Dosage: 37.5 MG, DAILY 4 WEEKS ON, 2 WEEKS OFF)
     Route: 048
     Dates: start: 20140927
  2. COREG [Concomitant]
     Active Substance: CARVEDILOL
     Dosage: UNK
  3. SIMVASTATIN. [Concomitant]
     Active Substance: SIMVASTATIN
     Dosage: 10 MG, TAKE 1 PO DAILY
     Route: 048
  4. SUTENT [Suspect]
     Active Substance: SUNITINIB MALATE
     Dosage: 37.5 MG, CYCLIC (2 WEEKS ON/1 WEEK OFF)
     Dates: start: 201503, end: 20150910
  5. LOTREL [Concomitant]
     Active Substance: AMLODIPINE BESYLATE\BENAZEPRIL HYDROCHLORIDE
     Dosage: UNK
  6. CARVEDILOL. [Concomitant]
     Active Substance: CARVEDILOL
     Dosage: 12.5 MG, 2X/DAY
     Route: 048
  7. AMLODIPINE BESYLATE. [Concomitant]
     Active Substance: AMLODIPINE BESYLATE
     Dosage: 5 MG, TAKE 1 PO DAILY
     Route: 048
  8. SUTENT [Suspect]
     Active Substance: SUNITINIB MALATE
     Dosage: 37.5 MG, CYCLIC (DAILY 2 WEEKS ON, 1 WEEKS OFF)
     Route: 048
     Dates: start: 20140927

REACTIONS (25)
  - Skin lesion [Unknown]
  - Diarrhoea [Recovered/Resolved]
  - Dysphagia [Not Recovered/Not Resolved]
  - Impaired healing [Unknown]
  - Glossodynia [Not Recovered/Not Resolved]
  - Yellow skin [Not Recovered/Not Resolved]
  - Anxiety [Unknown]
  - Lacrimation increased [Not Recovered/Not Resolved]
  - Skin lesion [Recovered/Resolved]
  - Rash [Recovering/Resolving]
  - Oral discomfort [Not Recovered/Not Resolved]
  - Pruritus [Not Recovered/Not Resolved]
  - Malaise [Recovered/Resolved]
  - Eating disorder [Recovered/Resolved]
  - Dyspepsia [Unknown]
  - Pain in extremity [Unknown]
  - Blister [Recovered/Resolved]
  - Muscle spasms [Unknown]
  - Chills [Recovered/Resolved]
  - Blood glucose increased [Unknown]
  - Eye irritation [Not Recovered/Not Resolved]
  - Hypoaesthesia [Not Recovered/Not Resolved]
  - Nail bed bleeding [Not Recovered/Not Resolved]
  - Dry skin [Not Recovered/Not Resolved]
  - Pyrexia [Recovered/Resolved]

NARRATIVE: CASE EVENT DATE: 2014
